FAERS Safety Report 16919777 (Version 1)
Quarter: 2019Q4

REPORT INFORMATION
  Report Type: Spontaneous
  Country: US (occurrence: US)
  Receive Date: 20190822
  Receipt Date: 20190822
  Transmission Date: 20200122
  Serious: No
  Sender: FDA-Public Use
  Company Number: None

PATIENT
  Sex: Female
  Weight: 142.88 kg

DRUGS (2)
  1. CAPECITABINE. [Suspect]
     Active Substance: CAPECITABINE
     Indication: COLON CANCER
     Dosage: ?          OTHER FREQUENCY:4TBID;?
     Route: 048
     Dates: start: 20190404
  2. NO DRUG NAME [Concomitant]

REACTIONS (2)
  - Urinary tract infection bacterial [None]
  - Pneumonia [None]
